FAERS Safety Report 16840149 (Version 1)
Quarter: 2019Q3

REPORT INFORMATION
  Report Type: Report from Study
  Country: US (occurrence: US)
  Receive Date: 20190923
  Receipt Date: 20190923
  Transmission Date: 20191005
  Serious: Yes (Death)
  Sender: FDA-Public Use
  Company Number: US-PFIZER INC-2019408275

PATIENT
  Age: 63 Year
  Sex: Male

DRUGS (1)
  1. HEPARIN SODIUM. [Suspect]
     Active Substance: HEPARIN SODIUM
     Dosage: UNK (CONTINUOUS)
     Route: 042

REACTIONS (4)
  - Cardiac perforation [Fatal]
  - Peripheral artery thrombosis [Fatal]
  - Ventricular tachycardia [Fatal]
  - Pericardial haemorrhage [Fatal]
